FAERS Safety Report 5054981-6 (Version None)
Quarter: 2006Q3

REPORT INFORMATION
  Report Type: 
  Country: None (occurrence: None)
  Receive Date: 20060719
  Receipt Date: 20051021
  Transmission Date: 20061208
  Serious: Yes (Death, Hospitalization, Other)
  Sender: FDA-Public Use
  Company Number: GB-GLAXOSMITHKLINE-B0397948A

PATIENT
  Age: 80 Year
  Sex: Male

DRUGS (5)
  1. SERETIDE [Suspect]
     Route: 055
  2. INSULIN [Concomitant]
     Route: 042
  3. ASPIRIN [Concomitant]
     Route: 048
  4. BENDROFLUAZIDE [Concomitant]
     Route: 048
  5. OMEPRAZOLE [Concomitant]
     Route: 048

REACTIONS (5)
  - BLADDER CANCER [None]
  - BRONCHOPNEUMONIA [None]
  - CHRONIC OBSTRUCTIVE PULMONARY DISEASE [None]
  - HAEMATURIA [None]
  - PULMONARY EMBOLISM [None]
